FAERS Safety Report 10025689 (Version 1)
Quarter: 2014Q1

REPORT INFORMATION
  Report Type: Spontaneous
  Country: US (occurrence: US)
  Receive Date: 20140320
  Receipt Date: 20140320
  Transmission Date: 20141002
  Serious: No
  Sender: FDA-Public Use
  Company Number: US-B.I. PHARMACEUTICALS,INC./RIDGEFIELD-2014-BI-11486BP

PATIENT
  Age: 65 Year
  Sex: Female

DRUGS (4)
  1. TRADJENTA [Suspect]
     Indication: DIABETES MELLITUS
     Dosage: 5 MG
     Route: 048
     Dates: start: 201401, end: 20140301
  2. METOPROLOL [Concomitant]
     Indication: HYPERTENSION
     Dosage: 100 MG
     Route: 048
  3. METOPROLOL [Concomitant]
     Dosage: 50 MG
     Route: 048
  4. CHLOROTHIAZIDE [Concomitant]
     Indication: ILL-DEFINED DISORDER
     Dosage: 25 MG
     Route: 048

REACTIONS (1)
  - Pancreatic enzymes abnormal [Unknown]
